FAERS Safety Report 10023997 (Version 1)
Quarter: 2014Q1

REPORT INFORMATION
  Report Type: Spontaneous
  Country: DK (occurrence: FR)
  Receive Date: 20140320
  Receipt Date: 20140320
  Transmission Date: 20141002
  Serious: Yes (Hospitalization)
  Sender: FDA-Public Use
  Company Number: FR-FRI-1000064771

PATIENT
  Age: 87 Year
  Sex: Female

DRUGS (8)
  1. ESCITALOPRAM [Suspect]
     Indication: DEPRESSION
     Dosage: 5 MG
     Route: 048
     Dates: end: 20131211
  2. ESCITALOPRAM [Suspect]
     Dosage: 2.5 MG
     Route: 048
     Dates: start: 20131217, end: 20131221
  3. TERCIAN [Suspect]
     Indication: DEPRESSION
     Dosage: 0.5 DF
     Route: 048
     Dates: start: 20131212, end: 20131216
  4. BISOCE [Concomitant]
  5. FUROSEMIDE [Concomitant]
  6. TRIVASTAL [Concomitant]
  7. ZOPICLONE [Concomitant]
  8. MICARDIS [Concomitant]

REACTIONS (3)
  - Confusional state [Recovered/Resolved]
  - Hallucinations, mixed [Recovered/Resolved]
  - Withdrawal syndrome [Recovered/Resolved]
